FAERS Safety Report 25124431 (Version 1)
Quarter: 2025Q1

REPORT INFORMATION
  Report Type: Spontaneous
  Country: IN (occurrence: IN)
  Receive Date: 20250326
  Receipt Date: 20250326
  Transmission Date: 20250409
  Serious: Yes (Other)
  Sender: ROCHE
  Company Number: IN-ROCHE-10000216609

PATIENT
  Age: 19 Year
  Sex: Male

DRUGS (10)
  1. TECENTRIQ [Suspect]
     Active Substance: ATEZOLIZUMAB
     Indication: Portal hypertension
     Route: 042
     Dates: start: 20240911
  2. TECENTRIQ [Suspect]
     Active Substance: ATEZOLIZUMAB
     Indication: Hepatic cirrhosis
  3. TECENTRIQ [Suspect]
     Active Substance: ATEZOLIZUMAB
     Indication: Hepatitis B
  4. TECENTRIQ [Suspect]
     Active Substance: ATEZOLIZUMAB
     Indication: Hepatocellular carcinoma
  5. TECENTRIQ [Suspect]
     Active Substance: ATEZOLIZUMAB
     Indication: Portal vein thrombosis
  6. AVASTIN [Suspect]
     Active Substance: BEVACIZUMAB
     Indication: Portal hypertension
     Route: 042
     Dates: start: 20240911
  7. AVASTIN [Suspect]
     Active Substance: BEVACIZUMAB
     Indication: Hepatic cirrhosis
     Route: 042
  8. AVASTIN [Suspect]
     Active Substance: BEVACIZUMAB
     Indication: Hepatitis B
  9. AVASTIN [Suspect]
     Active Substance: BEVACIZUMAB
     Indication: Hepatocellular carcinoma
  10. AVASTIN [Suspect]
     Active Substance: BEVACIZUMAB
     Indication: Portal vein thrombosis

REACTIONS (2)
  - Neoplasm progression [Unknown]
  - Jaundice [Unknown]
